FAERS Safety Report 10977618 (Version 1)
Quarter: 2015Q2

REPORT INFORMATION
  Report Type: Spontaneous
  Country: US (occurrence: None)
  Receive Date: 20150401
  Receipt Date: 20150401
  Transmission Date: 20150821
  Serious: Yes (Other)
  Sender: FDA-Public Use
  Company Number: None

PATIENT
  Age: 34 Year
  Sex: Male
  Weight: 81.65 kg

DRUGS (4)
  1. VICKS DAYQUIL [Concomitant]
     Active Substance: DEXTROMETHORPHAN HYDROBROMIDE\GUAIFENESIN
  2. GINKO [Concomitant]
     Active Substance: GINKGO
  3. ADVIL [Concomitant]
     Active Substance: IBUPROFEN
  4. ALLEGRA [Suspect]
     Active Substance: FEXOFENADINE HYDROCHLORIDE
     Indication: SINUS DISORDER
     Dates: start: 20150326, end: 20150331

REACTIONS (5)
  - Insomnia [None]
  - Headache [None]
  - Gastric disorder [None]
  - Oropharyngeal pain [None]
  - Dyspnoea [None]

NARRATIVE: CASE EVENT DATE: 20150331
